FAERS Safety Report 18821611 (Version 1)
Quarter: 2021Q1

REPORT INFORMATION
  Report Type: Spontaneous
  Country: DK (occurrence: DK)
  Receive Date: 20210202
  Receipt Date: 20210202
  Transmission Date: 20210419
  Serious: Yes (Congenital Anomaly)
  Sender: FDA-Public Use
  Company Number: DK-MYLANLABS-2021M1005602

PATIENT

DRUGS (1)
  1. MITFORGEN [Suspect]
     Active Substance: METFORMIN HYDROCHLORIDE
     Indication: POLYCYSTIC OVARIES
     Dosage: 1500 MILLIGRAM, QD,STRENGTH: 500 MG
     Route: 064
     Dates: start: 20200408, end: 20200719

REACTIONS (2)
  - Foetal exposure during pregnancy [Recovered/Resolved]
  - Congenital central nervous system anomaly [Not Recovered/Not Resolved]
